FAERS Safety Report 5726485-6 (Version None)
Quarter: 2008Q2

REPORT INFORMATION
  Report Type: 
  Country: None (occurrence: None)
  Receive Date: 20080502
  Receipt Date: 20080424
  Transmission Date: 20081010
  Serious: Yes (Hospitalization)
  Sender: FDA-Public Use
  Company Number: US-ABBOTT-07P-163-0420567-00

PATIENT
  Sex: Female
  Weight: 68.1 kg

DRUGS (6)
  1. NIASPAN [Suspect]
     Indication: BLOOD CHOLESTEROL
     Dosage: 2000 MG AT BED TIME
     Route: 048
     Dates: start: 19990101, end: 20070801
  2. NIASPAN [Suspect]
  3. NIASPAN [Suspect]
     Indication: BLOOD CHOLESTEROL
     Dosage: 2000 MG AT BED TIME
     Route: 048
     Dates: start: 20070901, end: 20070901
  4. NIASPAN [Suspect]
     Dates: start: 20070901, end: 20071008
  5. WARFARIN SODIUM [Concomitant]
     Indication: AORTIC VALVE DISEASE
  6. INEGY [Concomitant]
     Indication: DRUG USE FOR UNKNOWN INDICATION

REACTIONS (6)
  - AORTIC STENOSIS [None]
  - CARDIAC MURMUR [None]
  - HAIR GROWTH ABNORMAL [None]
  - HEADACHE [None]
  - HOT FLUSH [None]
  - HYPERHIDROSIS [None]
